FAERS Safety Report 7341125-0 (Version None)
Quarter: 2011Q1

REPORT INFORMATION
  Report Type: 
  Country: None (occurrence: None)
  Receive Date: 20110309
  Receipt Date: 20110122
  Transmission Date: 20110831
  Serious: Yes (Life-Threatening)
  Sender: FDA-Public Use
  Company Number: A0909321A

PATIENT
  Age: 69 Year
  Sex: Female
  Weight: 84.1 kg

DRUGS (24)
  1. CENTRUM SILVER [Concomitant]
     Dates: start: 20090327
  2. ASCORBIC ACID [Concomitant]
     Dosage: 500MG PER DAY
     Dates: start: 20090327
  3. CALCIUM [Concomitant]
     Dates: start: 20090629
  4. FENOFIBRATE [Concomitant]
     Dosage: 160MG PER DAY
     Dates: start: 20100728
  5. ASPIRIN [Concomitant]
     Dates: start: 20080827
  6. ZYRTEC [Concomitant]
     Dosage: 10MG PER DAY
     Dates: start: 20080827
  7. CRESTOR [Concomitant]
     Dosage: 20MG PER DAY
     Dates: start: 20100125
  8. IPRATROPIUM BROMIDE [Concomitant]
     Dosage: .2MG FOUR TIMES PER DAY
     Route: 055
     Dates: start: 20100125
  9. VITAMIN D [Concomitant]
     Dosage: 1.25MG WEEKLY
     Dates: start: 20100125
  10. ADVAIR DISKUS 100/50 [Concomitant]
     Dosage: 1PUFF TWICE PER DAY
     Dates: start: 20100125
  11. FOLGARD [Concomitant]
     Dosage: 2.2MG PER DAY
     Dates: start: 20100125
  12. ATROVENT [Concomitant]
     Dosage: 2PUFF FOUR TIMES PER DAY
     Route: 048
     Dates: start: 20100311
  13. HYDROCORTISONE [Concomitant]
     Dosage: 25MG TWICE PER DAY
     Route: 054
     Dates: start: 20091215
  14. EPIPEN [Concomitant]
     Dates: start: 20090824
  15. SINGULAIR [Concomitant]
     Dosage: 10MG PER DAY
     Dates: start: 20100125
  16. CLOBEX [Concomitant]
     Dosage: 1APP TWICE PER DAY
     Dates: start: 20100409
  17. FLUTICASONE PROPIONATE [Concomitant]
     Dosage: 2SPR AT NIGHT
     Route: 045
     Dates: start: 20100728
  18. LOSARTAN POTASSIUM [Concomitant]
     Dosage: 100MG PER DAY
     Dates: start: 20100728
  19. SUDAFED 12 HOUR [Concomitant]
     Dates: start: 20080828
  20. ANUSOL HC [Concomitant]
     Dosage: 25MG TWICE PER DAY
     Route: 054
     Dates: start: 20100125
  21. IPRATROPIUM BROMIDE [Concomitant]
     Dates: start: 20100125
  22. POTASSIUM CHLORIDE [Concomitant]
     Dates: start: 20100504
  23. LOVAZA [Suspect]
     Route: 065
     Dates: start: 20080827, end: 20100601
  24. LACTULOSE [Concomitant]
     Dosage: 20G TWICE PER DAY
     Dates: start: 20100708

REACTIONS (5)
  - HYPERSENSITIVITY [None]
  - PHARYNGEAL OEDEMA [None]
  - DYSPNOEA [None]
  - FOOD ALLERGY [None]
  - SWOLLEN TONGUE [None]
